FAERS Safety Report 4418086-7 (Version None)
Quarter: 2004Q3

REPORT INFORMATION
  Report Type: 
  Country: None (occurrence: None)
  Receive Date: 20040730
  Receipt Date: 20040719
  Transmission Date: 20050211
  Serious: Yes (Other)
  Sender: FDA-Public Use
  Company Number: BE-JNJFOC-20040605431

PATIENT
  Age: 92 Year
  Sex: Male

DRUGS (2)
  1. PROPULSID [Suspect]
     Indication: IMPAIRED GASTRIC EMPTYING
     Dosage: 10 MG, 4 IN 1 DAY, ORAL  : 40 MG, 4 IN 1 DAY, ORAL
     Route: 048
     Dates: start: 20031203, end: 20040120
  2. PROPULSID [Suspect]
     Indication: IMPAIRED GASTRIC EMPTYING
     Dosage: 10 MG, 4 IN 1 DAY, ORAL  : 40 MG, 4 IN 1 DAY, ORAL
     Route: 048
     Dates: start: 20040120

REACTIONS (2)
  - COLONIC PSEUDO-OBSTRUCTION [None]
  - IMPAIRED GASTRIC EMPTYING [None]
